FAERS Safety Report 18623688 (Version 1)
Quarter: 2020Q4

REPORT INFORMATION
  Report Type: Spontaneous
  Country: US (occurrence: US)
  Receive Date: 20201216
  Receipt Date: 20201216
  Transmission Date: 20210114
  Serious: Yes (Hospitalization)
  Sender: FDA-Public Use
  Company Number: None

PATIENT
  Age: 61 Year
  Sex: Female
  Weight: 87.9 kg

DRUGS (1)
  1. BAMLANIVIMAB. [Suspect]
     Active Substance: BAMLANIVIMAB
     Indication: COVID-19
     Dosage: ?          OTHER FREQUENCY:ONCE;?
     Route: 042
     Dates: start: 20201214, end: 20201214

REACTIONS (5)
  - Dyspnoea [None]
  - Cognitive disorder [None]
  - Cough [None]
  - Confusional state [None]
  - COVID-19 pneumonia [None]

NARRATIVE: CASE EVENT DATE: 20201215
